FAERS Safety Report 8475079-0 (Version None)
Quarter: 2012Q2

REPORT INFORMATION
  Report Type: 
  Country: None (occurrence: None)
  Receive Date: 20120628
  Receipt Date: 20120620
  Transmission Date: 20120825
  Serious: Yes (Hospitalization)
  Sender: FDA-Public Use
  Company Number: CA-NOVOPROD-352457

PATIENT
  Sex: Female

DRUGS (4)
  1. VICTOZA [Suspect]
     Dosage: 1.2 MG, QD
     Route: 058
  2. VICTOZA [Suspect]
     Indication: TYPE 2 DIABETES MELLITUS
     Dosage: 0.6 MG, QD
     Route: 058
  3. GLICLAZIDE [Concomitant]
  4. METFORMIN HCL [Concomitant]

REACTIONS (3)
  - NAUSEA [None]
  - BOWEL MOVEMENT IRREGULARITY [None]
  - ABDOMINAL PAIN [None]
